FAERS Safety Report 6379830-5 (Version None)
Quarter: 2009Q3

REPORT INFORMATION
  Report Type: 
  Country: None (occurrence: None)
  Receive Date: 20090918
  Receipt Date: 20090806
  Transmission Date: 20100115
  Serious: Yes (Other)
  Sender: FDA-Public Use
  Company Number: ADR-238-035

PATIENT
  Age: 63 Year
  Sex: Female
  Weight: 124.7392 kg

DRUGS (3)
  1. AMLODIPINE BESYLATE [Suspect]
     Indication: HYPERTENSION
     Dosage: ORAL  5MG /DAY; SINCE 2 WEEKS
     Route: 048
  2. ACTOST [Concomitant]
  3. METFORMIN [Concomitant]

REACTIONS (1)
  - ABNORMAL DREAMS [None]
